FAERS Safety Report 22137136 (Version 1)
Quarter: 2023Q1

REPORT INFORMATION
  Report Type: Spontaneous
  Country: US (occurrence: US)
  Receive Date: 20230324
  Receipt Date: 20230324
  Transmission Date: 20230418
  Serious: Yes (Death, Other)
  Sender: FDA-Public Use
  Company Number: US-009507513-2303USA007065

PATIENT
  Age: 61 Year
  Sex: Female

DRUGS (9)
  1. DIFICID [Suspect]
     Active Substance: FIDAXOMICIN
     Route: 048
  2. XANAX [Concomitant]
     Active Substance: ALPRAZOLAM
     Indication: Depression
  3. PROZAC [Concomitant]
     Active Substance: FLUOXETINE HYDROCHLORIDE
     Indication: Depression
     Dosage: UNK
     Dates: start: 20181229
  4. GEODON [Concomitant]
     Active Substance: ZIPRASIDONE HYDROCHLORIDE\ZIPRASIDONE MESYLATE
     Indication: Depression
  5. LEVOTHYROXINE [Concomitant]
     Active Substance: LEVOTHYROXINE
     Indication: Hypothyroidism
  6. HEPARIN SODIUM [Concomitant]
     Active Substance: HEPARIN SODIUM
     Dosage: UNK
     Dates: start: 20200422
  7. EMLA [Concomitant]
     Active Substance: LIDOCAINE\PRILOCAINE
     Dosage: UNK
     Dates: start: 20200429, end: 20220830
  8. RITALIN [Concomitant]
     Active Substance: METHYLPHENIDATE HYDROCHLORIDE
     Dosage: UNK
     Dates: start: 20181228, end: 20220830
  9. COMPAZINE [Concomitant]
     Active Substance: PROCHLORPERAZINE MALEATE
     Dosage: UNK
     Dates: start: 20220526

REACTIONS (19)
  - Death [Fatal]
  - Hydronephrosis [Unknown]
  - Nephrolithiasis [Unknown]
  - Hydroureter [Unknown]
  - Gastrointestinal oedema [Unknown]
  - Intussusception [Unknown]
  - Gastrooesophageal reflux disease [Unknown]
  - Oesophageal motility disorder [Unknown]
  - Arteriosclerosis [Unknown]
  - Atelectasis [Unknown]
  - Pleural effusion [Unknown]
  - Generalised oedema [Unknown]
  - Soft tissue mass [Unknown]
  - Drug ineffective [Unknown]
  - Malnutrition [Unknown]
  - Attention deficit hyperactivity disorder [Unknown]
  - Back pain [Unknown]
  - Dry skin [Unknown]
  - Osteopenia [Unknown]

NARRATIVE: CASE EVENT DATE: 20220701
